FAERS Safety Report 7892366-5 (Version None)
Quarter: 2011Q4

REPORT INFORMATION
  Report Type: 
  Country: None (occurrence: None)
  Receive Date: 20111103
  Receipt Date: 20111103
  Transmission Date: 20120403
  Serious: Yes (Hospitalization)
  Sender: FDA-Public Use
  Company Number: None

PATIENT
  Age: 75 Year
  Sex: Female

DRUGS (10)
  1. SIMVASTATIN LIDEX [Concomitant]
  2. DILTIAZEM HCL [Concomitant]
  3. FLUOXETINE HCL [Concomitant]
  4. ROPINOROLE [Concomitant]
  5. VITAMIN TAB [Concomitant]
  6. CELECOXIB [Concomitant]
  7. EFUDEX [Concomitant]
  8. TYLENOL-500 [Concomitant]
  9. FUROSEMIDE [Concomitant]
  10. WARFARIN SODIUM [Suspect]
     Indication: ATRIAL FIBRILLATION
     Dosage: 4MG DAILY ORAL CHRONIC
     Route: 048

REACTIONS (2)
  - RENAL HAEMORRHAGE [None]
  - INTRA-ABDOMINAL HAEMATOMA [None]
